FAERS Safety Report 13462201 (Version 2)
Quarter: 2017Q2

REPORT INFORMATION
  Report Type: Spontaneous
  Country: IT (occurrence: IT)
  Receive Date: 20170420
  Receipt Date: 20170511
  Transmission Date: 20170830
  Serious: Yes (Other)
  Sender: FDA-Public Use
  Company Number: IT-JNJFOC-20170413201

PATIENT
  Age: 56 Year
  Sex: Male

DRUGS (1)
  1. HUMAN CLOTTABLE PROTEIN/HUMAN THROMBIN [Suspect]
     Active Substance: FIBRINOGEN HUMAN\THROMBIN HUMAN
     Indication: BRONCHOPLEURAL FISTULA
     Route: 061

REACTIONS (4)
  - Infectious pleural effusion [Recovered/Resolved]
  - Lung consolidation [Recovered/Resolved]
  - Hyperthermia [Recovered/Resolved]
  - Off label use [Recovered/Resolved]
